FAERS Safety Report 7129948-4 (Version None)
Quarter: 2010Q4

REPORT INFORMATION
  Report Type: 
  Country: None (occurrence: None)
  Receive Date: 20101130
  Receipt Date: 20100729
  Transmission Date: 20110411
  Serious: No
  Sender: FDA-Public Use
  Company Number: US-AMGEN-QUU428015

PATIENT

DRUGS (5)
  1. ARANESP [Suspect]
     Indication: RENAL FAILURE CHRONIC
     Dosage: 90 A?G, QWK
     Dates: start: 20080211
  2. VALSARTAN [Concomitant]
     Dosage: UNK UNK, UNK
  3. LEVOTHYROXINE SODIUM [Concomitant]
     Dosage: UNK UNK, UNK
  4. GLIMEPIRIDE [Concomitant]
     Dosage: UNK UNK, UNK
  5. VENOFER [Concomitant]
     Dosage: UNK UNK, QMO
     Route: 042

REACTIONS (2)
  - IRON BINDING CAPACITY TOTAL DECREASED [None]
  - SERUM FERRITIN INCREASED [None]
